FAERS Safety Report 7972119-X (Version None)
Quarter: 2011Q4

REPORT INFORMATION
  Report Type: 
  Country: None (occurrence: None)
  Receive Date: 20111212
  Receipt Date: 20111205
  Transmission Date: 20120403
  Serious: Yes (Other)
  Sender: FDA-Public Use
  Company Number: US-RB-023934-11

PATIENT
  Sex: Female

DRUGS (5)
  1. ADDERALL 5 [Concomitant]
     Indication: ATTENTION DEFICIT/HYPERACTIVITY DISORDER
     Dosage: 20 MG/ORAL
     Route: 048
     Dates: start: 20101207, end: 20110308
  2. AMBIEN [Concomitant]
     Indication: INSOMNIA
     Route: 048
     Dates: start: 20091125
  3. CLORAZEPATE DIPOTASSIUM [Concomitant]
     Indication: ANXIETY DISORDER
     Route: 048
     Dates: start: 20110308
  4. SUBUTEX [Suspect]
     Indication: DRUG DEPENDENCE
     Route: 048
     Dates: start: 20110308, end: 20110413
  5. SUBOXONE [Suspect]
     Indication: DRUG DEPENDENCE
     Route: 048
     Dates: start: 20091124, end: 20110308

REACTIONS (4)
  - MATERNAL EXPOSURE DURING PREGNANCY [None]
  - ABORTION SPONTANEOUS [None]
  - PREGNANCY [None]
  - INCORRECT ROUTE OF DRUG ADMINISTRATION [None]
